FAERS Safety Report 15235566 (Version 8)
Quarter: 2019Q3

REPORT INFORMATION
  Report Type: Spontaneous
  Country: US (occurrence: US)
  Receive Date: 20180803
  Receipt Date: 20190821
  Transmission Date: 20191004
  Serious: No
  Sender: FDA-Public Use
  Company Number: US-PFIZER INC-2018312538

PATIENT
  Age: 13 Year
  Sex: Male
  Weight: 48 kg

DRUGS (5)
  1. LYRICA [Suspect]
     Active Substance: PREGABALIN
     Dosage: 125 MG, DAILY (TAKE 1 CAPSULE ORALLY TID ALONG WITH LYRICA 100 MG CAPSULE TID)
     Route: 048
  2. LYRICA [Suspect]
     Active Substance: PREGABALIN
     Dosage: 25 MG, UNK
  3. LYRICA [Suspect]
     Active Substance: PREGABALIN
     Dosage: 300 MG, UNK
  4. LYRICA [Suspect]
     Active Substance: PREGABALIN
     Indication: MUSCULAR DYSTROPHY
     Dosage: 100 MG, 3X/DAY
     Route: 048
     Dates: start: 201806
  5. LYRICA [Suspect]
     Active Substance: PREGABALIN
     Dosage: 125 MG, DAILY (TAKE 1 CAPSULE ORALLY TID ALONG WITH LYRICA 100 MG CAPSULE TID)
     Route: 048

REACTIONS (4)
  - Mood altered [Unknown]
  - Drug effective for unapproved indication [Unknown]
  - Off label use [Unknown]
  - Product use issue [Unknown]

NARRATIVE: CASE EVENT DATE: 201806
